FAERS Safety Report 8908829 (Version 1)
Quarter: 2012Q4

REPORT INFORMATION
  Report Type: 
  Country: US (occurrence: US)
  Receive Date: 20121113
  Receipt Date: 20121113
  Transmission Date: 20130627
  Serious: No
  Sender: FDA-Public Use
  Company Number: US-AMGEN-USASP2012011776

PATIENT
  Age: 54 Year
  Sex: Female

DRUGS (16)
  1. ENBREL [Suspect]
     Indication: PRODUCT USED FOR UNKNOWN INDICATION
     Dosage: 50 mg, qwk
     Route: 058
  2. CYMBALTA [Concomitant]
     Dosage: 50 mg, UNK
  3. CENTRUM SILVER                     /01292501/ [Concomitant]
  4. CALTRATE                           /00751519/ [Concomitant]
  5. METHOTREXATE [Concomitant]
     Dosage: 2.5 mg, UNK
  6. NASONEX [Concomitant]
  7. ALLERGAN [Concomitant]
     Dosage: 30 mg, UNK
  8. ATENOLOL [Concomitant]
     Dosage: 25 mg, UNK
  9. NEXIUM                             /01479302/ [Concomitant]
     Dosage: 20 mg, UNK
  10. CRESTOR [Concomitant]
     Dosage: 10 mg, UNK
  11. NIACINAMIDE [Concomitant]
     Dosage: 100 mg, UNK
  12. VITAMIN D /00107901/ [Concomitant]
  13. ZOLPIDEM EUROGENERICS [Concomitant]
     Dosage: 12.5 mg, UNK
  14. ESTER C                            /00008001/ [Concomitant]
  15. BENICAR HCT [Concomitant]
  16. FOLIC ACID [Concomitant]

REACTIONS (2)
  - Sinusitis [Unknown]
  - Injection site bruising [Unknown]
